FAERS Safety Report 4693331-1 (Version None)
Quarter: 2005Q2

REPORT INFORMATION
  Report Type: 
  Country: None (occurrence: None)
  Receive Date: 20050615
  Receipt Date: 20050601
  Transmission Date: 20051028
  Serious: Yes (Death)
  Sender: FDA-Public Use
  Company Number: US_010870762

PATIENT
  Age: 40 Year
  Sex: Male
  Weight: 85 kg

DRUGS (4)
  1. ZYPREXA [Suspect]
     Dosage: 10 MG
  2. CELEXA [Concomitant]
  3. RISPERIDONE [Concomitant]
  4. CLONAZEPAM [Concomitant]

REACTIONS (7)
  - ACCIDENTAL DEATH [None]
  - BRONCHITIS CHRONIC [None]
  - CARDIOMEGALY [None]
  - DRUG INTERACTION POTENTIATION [None]
  - DRUG TOXICITY [None]
  - HEPATIC STEATOSIS [None]
  - OBESITY [None]
